FAERS Safety Report 7928251-X (Version None)
Quarter: 2011Q4

REPORT INFORMATION
  Report Type: 
  Country: None (occurrence: None)
  Receive Date: 20111118
  Receipt Date: 20111111
  Transmission Date: 20120403
  Serious: Yes (Hospitalization)
  Sender: FDA-Public Use
  Company Number: NO-PFIZER INC-2008154746

PATIENT
  Age: 50 Year
  Sex: Female
  Weight: 64 kg

DRUGS (7)
  1. ACETAMINOPHEN [Concomitant]
     Indication: PROCEDURAL PAIN
     Route: 048
     Dates: start: 20081107, end: 20081108
  2. AZITHROMYCIN [Suspect]
     Indication: ANTIBIOTIC PROPHYLAXIS
     Dosage: 500 MG, UNK
     Route: 048
     Dates: start: 20081107, end: 20081107
  3. VOLTAREN [Concomitant]
     Indication: ABDOMINAL PAIN
     Dosage: 75 MG UNK
     Route: 030
     Dates: start: 20081108
  4. BENZYLPENICILLIN [Concomitant]
     Indication: SEPSIS
     Dosage: 3 G, 4X/DAY
     Route: 051
     Dates: start: 20081108, end: 20081120
  5. GARAMYCIN [Concomitant]
     Indication: INFECTION
     Route: 051
     Dates: start: 20081108, end: 20081108
  6. PROGESTERONE [Concomitant]
     Indication: DYSMENORRHOEA
  7. KETOBEMIDONE HYDROCHLORIDE [Concomitant]
     Indication: ABDOMINAL PAIN
     Dosage: 2.5 MG UNK
     Route: 042
     Dates: start: 20081108

REACTIONS (5)
  - HEPATIC FAILURE [None]
  - HAEMORRHAGIC ANAEMIA [None]
  - HEPATIC NECROSIS [None]
  - RENAL FAILURE ACUTE [None]
  - CEREBRAL INFARCTION [None]
